FAERS Safety Report 19731158 (Version 1)
Quarter: 2021Q3

REPORT INFORMATION
  Report Type: Spontaneous
  Country: US (occurrence: US)
  Receive Date: 20210821
  Receipt Date: 20210821
  Transmission Date: 20211014
  Serious: No
  Sender: FDA-Public Use
  Company Number: US-TAKEDA-2021TUS051267

PATIENT
  Sex: Male

DRUGS (2)
  1. VYVANSE [Suspect]
     Active Substance: LISDEXAMFETAMINE DIMESYLATE
     Indication: ATTENTION DEFICIT HYPERACTIVITY DISORDER
     Dosage: UNK MILLIGRAM
     Route: 065
     Dates: start: 2018, end: 2020
  2. TUMS [Suspect]
     Active Substance: CALCIUM CARBONATE

REACTIONS (2)
  - Abnormal behaviour [Unknown]
  - Potentiating drug interaction [Unknown]
